FAERS Safety Report 4367326-1 (Version None)
Quarter: 2004Q2

REPORT INFORMATION
  Report Type: 
  Country: None (occurrence: None)
  Receive Date: 20040527
  Receipt Date: 20040513
  Transmission Date: 20050107
  Serious: Yes (Hospitalization, Other)
  Sender: FDA-Public Use
  Company Number: 2004S1001004

PATIENT
  Age: 60 Year
  Sex: Female
  Weight: 70.7611 kg

DRUGS (13)
  1. CAELYX (LIPOSOMAL DOXORUGICIN) INJECTABLE SOLUTION [Suspect]
     Indication: PERITONEAL CARCINOMA
     Dosage: 30 MG/M^2 INTRAVENOUS
     Route: 042
     Dates: start: 20040223, end: 20040223
  2. CAELYX (LIPOSOMAL DOXORUGICIN) INJECTABLE SOLUTION [Suspect]
     Indication: PERITONEAL CARCINOMA
     Dosage: 30 MG/M^2 INTRAVENOUS
     Route: 042
     Dates: start: 20040407, end: 20040407
  3. PACLITAXEL [Suspect]
     Indication: PERITONEAL CARCINOMA
     Dosage: 175 MG/M^2 INTRAVENOUS
     Route: 042
     Dates: start: 20040223, end: 20040223
  4. PACLITAXEL [Suspect]
     Indication: PERITONEAL CARCINOMA
     Dosage: 175 MG/M^2 INTRAVENOUS
     Route: 042
     Dates: start: 20040317, end: 20040317
  5. PACLITAXEL [Suspect]
     Indication: PERITONEAL CARCINOMA
     Dosage: 175 MG/M^2 INTRAVENOUS
     Route: 042
     Dates: start: 20040407, end: 20040407
  6. CARBOPLATIN [Suspect]
     Indication: PERITONEAL CARCINOMA
     Dosage: 709 MG INTRAVENOUS
     Route: 042
     Dates: start: 20040227, end: 20040227
  7. CARBOPLATIN [Suspect]
     Indication: PERITONEAL CARCINOMA
     Dosage: 709 MG INTRAVENOUS
     Route: 042
     Dates: start: 20040317, end: 20040317
  8. CARBOPLATIN [Suspect]
     Indication: PERITONEAL CARCINOMA
     Dosage: 709 MG INTRAVENOUS
     Route: 042
     Dates: start: 20040407, end: 20040407
  9. SIMVASTATIN [Concomitant]
  10. TROPISETRON [Concomitant]
  11. DEXAMETHASONE [Concomitant]
  12. RANITIDINE [Concomitant]
  13. DIPHENHYDRAMINE HCL [Concomitant]

REACTIONS (8)
  - BLOOD PRESSURE DECREASED [None]
  - DEHYDRATION [None]
  - DIARRHOEA [None]
  - NEUTROPENIA [None]
  - PLEURAL EFFUSION [None]
  - POST PROCEDURAL VOMITING [None]
  - PYREXIA [None]
  - URINARY TRACT INFECTION [None]
